FAERS Safety Report 5655690-2 (Version None)
Quarter: 2008Q1

REPORT INFORMATION
  Report Type: 
  Country: None (occurrence: None)
  Receive Date: 20080212
  Receipt Date: 20070517
  Transmission Date: 20080703
  Serious: No
  Sender: FDA-Public Use
  Company Number: MC200700255

PATIENT
  Age: 71 Year
  Sex: Female
  Weight: 86.2 kg

DRUGS (15)
  1. ANGIOMAX [Suspect]
     Indication: PERIPHERAL REVASCULARISATION
     Dosage: 0.75 MG/KG, BOLUS, IV BOLUS
     Route: 040
     Dates: start: 20070319, end: 20070319
  2. ANGIOMAX [Suspect]
     Dosage: 1.75 MG/KG, HR, INTRAVENOUS
     Route: 042
     Dates: start: 20070219
  3. COREG [Concomitant]
  4. GLIMEPIRIDE [Concomitant]
  5. NORVASC /00972401/ (AMLODIPINE) [Concomitant]
  6. PLAVIX [Concomitant]
  7. LISINOPRIL [Concomitant]
  8. LEVOTHYROXINE SODIUM [Concomitant]
  9. LASIX [Concomitant]
  10. CHANTRIX (VARENCLINE) [Concomitant]
  11. CALCIUM (CALCIUM) [Concomitant]
  12. LORTAB [Concomitant]
  13. VYTORIN [Concomitant]
  14. HUMALIN (INSULIN) [Concomitant]
  15. ASPIRIN [Concomitant]

REACTIONS (1)
  - HAEMORRHAGE [None]
